FAERS Safety Report 5053456-8 (Version None)
Quarter: 2006Q2

REPORT INFORMATION
  Report Type: 
  Country: None (occurrence: None)
  Receive Date: 20060614
  Receipt Date: 20060512
  Transmission Date: 20061013
  Serious: Yes (Other)
  Sender: FDA-Public Use
  Company Number: 447943

PATIENT
  Age: 89 Year
  Sex: Female

DRUGS (4)
  1. BONIVA [Suspect]
     Indication: OSTEOPOROSIS
     Dosage: 1 DOSE FORM 1 PER MONTH ORAL
     Route: 048
     Dates: start: 20060215
  2. LEXAPRO [Concomitant]
  3. FOLIC ACID [Concomitant]
  4. TOPROL-XL [Concomitant]

REACTIONS (5)
  - CHEST PAIN [None]
  - CONFUSIONAL STATE [None]
  - DIARRHOEA [None]
  - SYNCOPE [None]
  - VOMITING [None]
